FAERS Safety Report 18652396 (Version 7)
Quarter: 2023Q2

REPORT INFORMATION
  Report Type: Spontaneous
  Country: GB (occurrence: GB)
  Receive Date: 20201222
  Receipt Date: 20230413
  Transmission Date: 20230722
  Serious: Yes (Hospitalization, Other)
  Sender: FDA-Public Use
  Company Number: GB-SAMSUNG BIOEPIS-SB-2020-35183

PATIENT
  Sex: Female

DRUGS (39)
  1. MORPHINE SULFATE [Suspect]
     Active Substance: MORPHINE SULFATE
     Indication: Product used for unknown indication
     Dosage: UNKNOWN
     Route: 065
  2. ADALIMUMAB [Suspect]
     Active Substance: ADALIMUMAB
     Indication: Crohn^s disease
     Dosage: 40 MG, EVERY 2 WEEKS
     Route: 058
     Dates: start: 20200728
  3. HUMIRA [Suspect]
     Active Substance: ADALIMUMAB
     Indication: Crohn^s disease
     Dosage: UNK
     Route: 065
     Dates: start: 201604
  4. IMRALDI [Suspect]
     Active Substance: ADALIMUMAB
     Indication: Crohn^s disease
     Dosage: 40 MG, EVERY 2 WEEKS
     Route: 058
     Dates: start: 20200728
  5. SENNA ALEXANDRINA WHOLE [Concomitant]
     Active Substance: SENNA ALEXANDRINA WHOLE
     Indication: Product used for unknown indication
     Dosage: UNKNOWN
     Route: 065
  6. SENNA ALEXANDRINA WHOLE [Concomitant]
     Active Substance: SENNA ALEXANDRINA WHOLE
     Dosage: UNK
     Route: 065
  7. SENNA ALEXANDRINA WHOLE [Concomitant]
     Active Substance: SENNA ALEXANDRINA WHOLE
     Dosage: UNK
     Route: 065
  8. SENNA ALEXANDRINA WHOLE [Concomitant]
     Active Substance: SENNA ALEXANDRINA WHOLE
     Dosage: UNK
     Route: 065
  9. ZOPICLONE [Concomitant]
     Active Substance: ZOPICLONE
     Indication: Product used for unknown indication
     Dosage: UNKNOWN
     Route: 065
  10. ZOPICLONE [Concomitant]
     Active Substance: ZOPICLONE
     Dosage: UNK
     Route: 065
  11. ZOPICLONE [Concomitant]
     Active Substance: ZOPICLONE
     Dosage: UNK
     Route: 065
  12. ZOPICLONE [Concomitant]
     Active Substance: ZOPICLONE
     Dosage: UNK
     Route: 065
  13. ZOPICLONE [Concomitant]
     Active Substance: ZOPICLONE
     Dosage: UNK
     Route: 065
  14. FEXOFENADINE HYDROCHLORIDE [Concomitant]
     Active Substance: FEXOFENADINE HYDROCHLORIDE
     Indication: Product used for unknown indication
     Dosage: UNKNOWN
     Route: 065
  15. FEXOFENADINE HYDROCHLORIDE [Concomitant]
     Active Substance: FEXOFENADINE HYDROCHLORIDE
     Dosage: UNK
     Route: 065
  16. FEXOFENADINE HYDROCHLORIDE [Concomitant]
     Active Substance: FEXOFENADINE HYDROCHLORIDE
     Dosage: UNK
  17. FEXOFENADINE HYDROCHLORIDE [Concomitant]
     Active Substance: FEXOFENADINE HYDROCHLORIDE
     Dosage: UNK
     Route: 065
  18. FEXOFENADINE HYDROCHLORIDE [Concomitant]
     Active Substance: FEXOFENADINE HYDROCHLORIDE
     Dosage: UNK
     Route: 065
  19. DERMOL                             /00337102/ [Concomitant]
     Indication: Product used for unknown indication
     Dosage: UNKNOWN
     Route: 065
  20. DERMOL                             /00337102/ [Concomitant]
     Dosage: UNK
     Route: 065
  21. DERMOL                             /00337102/ [Concomitant]
     Dosage: UNK
     Route: 065
  22. DERMOL                             /00337102/ [Concomitant]
     Dosage: UNK
     Route: 065
  23. DERMOL                             /00337102/ [Concomitant]
     Dosage: UNK
     Route: 065
  24. ALBUTEROL [Concomitant]
     Active Substance: ALBUTEROL
     Indication: Product used for unknown indication
     Dosage: UNKNOWN
     Route: 065
  25. ALBUTEROL [Concomitant]
     Active Substance: ALBUTEROL
     Dosage: UNK
     Route: 065
  26. ALBUTEROL [Concomitant]
     Active Substance: ALBUTEROL
     Dosage: UNK
     Route: 065
  27. ALBUTEROL [Concomitant]
     Active Substance: ALBUTEROL
     Dosage: UNK
     Route: 065
  28. ALBUTEROL [Concomitant]
     Active Substance: ALBUTEROL
     Dosage: UNK
     Route: 065
  29. CLOBETASONE BUTYRATE [Concomitant]
     Active Substance: CLOBETASONE BUTYRATE
     Indication: Product used for unknown indication
     Dosage: UNKNOWN
     Route: 065
  30. CLOBETASONE BUTYRATE [Concomitant]
     Active Substance: CLOBETASONE BUTYRATE
     Dosage: UNK
     Route: 065
  31. CLOBETASONE BUTYRATE [Concomitant]
     Active Substance: CLOBETASONE BUTYRATE
     Dosage: UNK
     Route: 065
  32. CLOBETASONE BUTYRATE [Concomitant]
     Active Substance: CLOBETASONE BUTYRATE
     Dosage: UNK
     Route: 065
  33. CLOBETASONE BUTYRATE [Concomitant]
     Active Substance: CLOBETASONE BUTYRATE
     Dosage: UNK
     Route: 065
  34. PROCHLORPERAZINE [Concomitant]
     Active Substance: PROCHLORPERAZINE
     Indication: Product used for unknown indication
     Dosage: UNKNOWN
     Route: 065
  35. PROCHLORPERAZINE [Concomitant]
     Active Substance: PROCHLORPERAZINE
     Dosage: UNK
     Route: 065
  36. PROCHLORPERAZINE [Concomitant]
     Active Substance: PROCHLORPERAZINE
     Dosage: UNK
     Route: 065
  37. PROCHLORPERAZINE [Concomitant]
     Active Substance: PROCHLORPERAZINE
     Dosage: UNK
     Route: 065
  38. PROCHLORPERAZINE [Concomitant]
     Active Substance: PROCHLORPERAZINE
     Dosage: UNK
     Route: 065
  39. SENNA LEAF [Concomitant]
     Active Substance: SENNA LEAF
     Indication: Product used for unknown indication
     Dosage: UNK
     Route: 065

REACTIONS (18)
  - Abdominal pain [Recovered/Resolved]
  - Pain [Recovered/Resolved]
  - Dizziness postural [Not Recovered/Not Resolved]
  - Nausea [Recovered/Resolved]
  - Vomiting [Unknown]
  - Malaise [Recovered/Resolved]
  - Headache [Unknown]
  - Back pain [Unknown]
  - Eczema [Recovered/Resolved]
  - Dermatitis atopic [Recovered/Resolved]
  - Seborrhoeic dermatitis [Not Recovered/Not Resolved]
  - Vulvovaginal pruritus [Not Recovered/Not Resolved]
  - Skin disorder [Not Recovered/Not Resolved]
  - Vaginal discharge [Not Recovered/Not Resolved]
  - Skin haemorrhage [Not Recovered/Not Resolved]
  - Vulvovaginal injury [Not Recovered/Not Resolved]
  - Pruritus [Not Recovered/Not Resolved]
  - Rash erythematous [Not Recovered/Not Resolved]

NARRATIVE: CASE EVENT DATE: 20201110
